FAERS Safety Report 4343926-X (Version None)
Quarter: 2004Q2

REPORT INFORMATION
  Report Type: 
  Country: None (occurrence: None)
  Receive Date: 20040419
  Receipt Date: 20040408
  Transmission Date: 20050107
  Serious: Yes (Hospitalization)
  Sender: FDA-Public Use
  Company Number: US-JNJFOC-20040300219

PATIENT
  Age: 23 Year
  Sex: Female

DRUGS (2)
  1. DITROPAN XL [Suspect]
     Indication: URINARY INCONTINENCE
     Dosage: SEE IMAGE
     Route: 048
     Dates: start: 20040201
  2. DITROPAN XL [Suspect]
     Indication: URINARY INCONTINENCE
     Dosage: SEE IMAGE
     Route: 048
     Dates: start: 20040201

REACTIONS (3)
  - CONDITION AGGRAVATED [None]
  - MULTIPLE SCLEROSIS [None]
  - TERMINAL DRIBBLING [None]
